FAERS Safety Report 5570224-9 (Version None)
Quarter: 2007Q4

REPORT INFORMATION
  Report Type: 
  Country: None (occurrence: None)
  Receive Date: 20071220
  Receipt Date: 20071210
  Transmission Date: 20080405
  Serious: Yes (Hospitalization)
  Sender: FDA-Public Use
  Company Number: FR-PFIZER INC-2007103865

PATIENT
  Sex: Female

DRUGS (11)
  1. ALDACTONE [Suspect]
     Indication: CARDIAC FAILURE
     Route: 048
     Dates: start: 20070901, end: 20070921
  2. PRAVASTATIN [Suspect]
     Indication: HYPERCHOLESTEROLAEMIA
     Route: 048
  3. UN-ALFA [Suspect]
     Route: 048
  4. HYPERIUM [Concomitant]
  5. FUROSEMIDE [Concomitant]
  6. AMLOR [Concomitant]
     Route: 048
  7. CORDARONE [Concomitant]
     Route: 048
  8. PREVISCAN [Concomitant]
     Route: 048
  9. LEVOTHYROX [Concomitant]
  10. STILNOX [Concomitant]
  11. CALCIDIA [Concomitant]

REACTIONS (4)
  - PRURITUS [None]
  - PURPURA [None]
  - RASH MACULAR [None]
  - RASH PAPULAR [None]
